FAERS Safety Report 10763279 (Version 2)
Quarter: 2015Q1

REPORT INFORMATION
  Report Type: Spontaneous
  Country: PL (occurrence: PL)
  Receive Date: 20150204
  Receipt Date: 20150210
  Transmission Date: 20150721
  Serious: Yes (Hospitalization)
  Sender: FDA-Public Use
  Company Number: PHHY2015PL011819

PATIENT
  Age: 60 Year
  Sex: Female

DRUGS (1)
  1. OLANZAPINE. [Suspect]
     Active Substance: OLANZAPINE
     Indication: SCHIZOPHRENIA
     Dosage: 450 MG, UNK
     Route: 030

REACTIONS (16)
  - Post-injection delirium sedation syndrome [Unknown]
  - Tachycardia [Unknown]
  - Upper airway obstruction [Unknown]
  - Somnolence [Unknown]
  - Asthenia [Unknown]
  - Dysarthria [Unknown]
  - Muscle rigidity [Unknown]
  - Loss of consciousness [Recovered/Resolved]
  - Blood pressure increased [Unknown]
  - Agitation [Unknown]
  - Unresponsive to stimuli [Unknown]
  - Miosis [Unknown]
  - Body temperature increased [Unknown]
  - Confusional state [Unknown]
  - Toxicity to various agents [Unknown]
  - Drug level increased [Unknown]
